FAERS Safety Report 5508409-X (Version None)
Quarter: 2007Q4

REPORT INFORMATION
  Report Type: 
  Country: None (occurrence: None)
  Receive Date: 20071107
  Receipt Date: 20071031
  Transmission Date: 20080405
  Serious: Yes (Hospitalization, Other)
  Sender: FDA-Public Use
  Company Number: PHEH2006US07334

PATIENT
  Age: 41 Year
  Sex: Female

DRUGS (15)
  1. ZOMETA [Suspect]
     Indication: METASTASES TO BONE
     Dosage: 4 MG Q4 WEEKS
     Dates: start: 20060317, end: 20060317
  2. GEMCITABINE HCL [Concomitant]
     Indication: BREAST CANCER
     Dosage: 1000 MG/M2 WEEKLY
     Dates: start: 20051024, end: 20060324
  3. AREDIA [Suspect]
     Indication: BREAST CANCER
     Dosage: UNK, QMO
     Route: 042
     Dates: start: 20040101, end: 20060301
  4. ANTINEOPLASTIC AGENTS [Concomitant]
  5. LASIX [Concomitant]
     Route: 042
  6. LASIX [Concomitant]
     Dosage: 80 MG, QD
     Route: 048
  7. MICRO-K [Concomitant]
     Dosage: 10 UNK, QID
     Route: 048
  8. LEXAPRO [Concomitant]
     Dosage: 20 MG, QD
     Route: 048
  9. ACETYLSALICYLIC ACID SRT [Concomitant]
     Dosage: 81 MG, QD
     Route: 048
  10. SYNTHROID [Concomitant]
     Dosage: 0.05 MG, QD
     Route: 048
  11. MARINOL [Concomitant]
     Dosage: 10 MG, BID
     Route: 048
  12. DURAGESIC-100 [Concomitant]
     Dosage: 100 UG, 4 PATCHES Q72H TO SKIN
     Route: 062
  13. PROCRIT [Concomitant]
     Dosage: 40,000 UNITS, QW
  14. XANAX [Concomitant]
     Dosage: 0.5 MG, TID
     Route: 048
  15. PHENERGAN ^WYETH-AYERST^ [Concomitant]
     Indication: NAUSEA
     Dosage: 25 MG, Q6H PRN
     Route: 048

REACTIONS (19)
  - ANXIETY [None]
  - BONE DEBRIDEMENT [None]
  - DECREASED INTEREST [None]
  - ERYTHEMA [None]
  - GENERAL PHYSICAL HEALTH DETERIORATION [None]
  - IMPAIRED HEALING [None]
  - INFLAMMATION [None]
  - MALNUTRITION [None]
  - OEDEMA PERIPHERAL [None]
  - OSTEOMYELITIS [None]
  - OSTEONECROSIS [None]
  - PAIN IN JAW [None]
  - PYREXIA [None]
  - STREPTOCOCCAL INFECTION [None]
  - STREPTOCOCCAL SEPSIS [None]
  - TENDERNESS [None]
  - TOOTH EXTRACTION [None]
  - TOOTH INFECTION [None]
  - WOUND DEBRIDEMENT [None]
